FAERS Safety Report 20539251 (Version 1)
Quarter: 2022Q1

REPORT INFORMATION
  Report Type: Spontaneous
  Country: BR (occurrence: BR)
  Receive Date: 20220302
  Receipt Date: 20220302
  Transmission Date: 20220424
  Serious: Yes (Other)
  Sender: FDA-Public Use
  Company Number: BR-JNJFOC-20210934186

PATIENT
  Sex: Male
  Weight: 84 kg

DRUGS (12)
  1. HALDOL [Suspect]
     Active Substance: HALOPERIDOL
     Indication: Schizophrenia
     Route: 048
     Dates: start: 1977
  2. HALOPERIDOL DECANOATE [Suspect]
     Active Substance: HALOPERIDOL DECANOATE
     Indication: Schizophrenia
     Route: 065
     Dates: start: 1986
  3. RIVOTRIL [Concomitant]
     Active Substance: CLONAZEPAM
     Indication: Product used for unknown indication
     Route: 065
  4. PANTOPRAZOLE [Concomitant]
     Active Substance: PANTOPRAZOLE
     Indication: Product used for unknown indication
     Route: 065
  5. CLONAZEPAM [Concomitant]
     Active Substance: CLONAZEPAM
     Indication: Product used for unknown indication
     Route: 065
  6. SUSTRATE [Concomitant]
     Active Substance: PROPATYL NITRATE
     Indication: Product used for unknown indication
     Route: 065
  7. ATORVASTATIN [Concomitant]
     Active Substance: ATORVASTATIN
     Indication: Product used for unknown indication
     Route: 065
  8. LOSARTAN [Concomitant]
     Active Substance: LOSARTAN
     Indication: Product used for unknown indication
     Route: 065
  9. SPIRONOLACTONE [Concomitant]
     Active Substance: SPIRONOLACTONE
     Indication: Product used for unknown indication
     Route: 065
  10. PROMETAZINA [PROMETHAZINE] [Concomitant]
     Indication: Product used for unknown indication
     Route: 065
  11. VENALOT [MELILOTUS OFFICINALIS EXTRACT] [Concomitant]
     Indication: Product used for unknown indication
     Route: 065
  12. WARFARIN SODIUM [Concomitant]
     Active Substance: WARFARIN SODIUM
     Indication: Product used for unknown indication
     Route: 065

REACTIONS (18)
  - Necrosis [Unknown]
  - Respiratory failure [Unknown]
  - Schizophrenia [Unknown]
  - Cardiac disorder [Unknown]
  - Cardiac disorder [Unknown]
  - Astigmatism [Unknown]
  - Hypoacusis [Unknown]
  - Memory impairment [Unknown]
  - Phlebitis [Unknown]
  - Onychomycosis [Unknown]
  - Dental caries [Unknown]
  - Anal sphincter atony [Unknown]
  - Dermatosis [Unknown]
  - Varicose vein [Unknown]
  - Decubitus ulcer [Unknown]
  - Tendon disorder [Unknown]
  - Hair growth abnormal [Unknown]
  - Finger deformity [Unknown]

NARRATIVE: CASE EVENT DATE: 19810101
